FAERS Safety Report 11701884 (Version 1)
Quarter: 2015Q4

REPORT INFORMATION
  Report Type: Report from Study
  Country: US (occurrence: US)
  Receive Date: 20151105
  Receipt Date: 20151105
  Transmission Date: 20160304
  Serious: Yes (Other)
  Sender: FDA-Public Use
  Company Number: US-GILEAD-2015-0179386

PATIENT
  Age: 44 Year
  Sex: Male

DRUGS (11)
  1. LITHIUM. [Concomitant]
     Active Substance: LITHIUM
  2. HYDROCORTISONE. [Concomitant]
     Active Substance: HYDROCORTISONE
  3. NEXIUM [Concomitant]
     Active Substance: ESOMEPRAZOLE MAGNESIUM
  4. TESTOSTERONE. [Concomitant]
     Active Substance: TESTOSTERONE
  5. ZOFRAN [Concomitant]
     Active Substance: ONDANSETRON HYDROCHLORIDE
  6. SOMA [Concomitant]
     Active Substance: CARISOPRODOL
  7. LEDIPASVIR/SOFOSBUVIR [Suspect]
     Active Substance: LEDIPASVIR\SOFOSBUVIR
     Indication: CHRONIC HEPATITIS C
     Dosage: 1 UNK, UNK
     Route: 048
     Dates: start: 20151021
  8. REMERON [Concomitant]
     Active Substance: MIRTAZAPINE
  9. KLONOPIN [Concomitant]
     Active Substance: CLONAZEPAM
     Indication: SEIZURE
  10. MARINOL [Concomitant]
     Active Substance: DRONABINOL
  11. OXYCODONE [Concomitant]
     Active Substance: OXYCODONE

REACTIONS (8)
  - Photophobia [Unknown]
  - Head injury [Unknown]
  - Eye irritation [Unknown]
  - Headache [Unknown]
  - Fatigue [Unknown]
  - Balance disorder [Not Recovered/Not Resolved]
  - Eye contusion [Unknown]
  - Lacrimation increased [Unknown]

NARRATIVE: CASE EVENT DATE: 20151022
